FAERS Safety Report 20803250 (Version 1)
Quarter: 2022Q2

REPORT INFORMATION
  Report Type: Report from Study
  Country: CA (occurrence: CA)
  Receive Date: 20220509
  Receipt Date: 20220509
  Transmission Date: 20220721
  Serious: Yes (Other)
  Sender: FDA-Public Use
  Company Number: CA-BAUSCH-BL-2021-013096

PATIENT
  Age: 69 Year
  Sex: Female

DRUGS (4)
  1. SILIQ [Suspect]
     Active Substance: BRODALUMAB
     Indication: Psoriasis
     Dosage: 210MG/1.5ML: 0,1,2 WEEK
     Route: 058
     Dates: start: 20210310, end: 20210324
  2. SILIQ [Suspect]
     Active Substance: BRODALUMAB
     Dosage: 210MG/1.5ML: EVERY OTHER WEEK, Q2WEEKS
     Route: 058
     Dates: start: 202103
  3. SILIQ [Suspect]
     Active Substance: BRODALUMAB
     Dosage: 210MG/1.5ML: EVERY 2WEEKS
     Route: 058
     Dates: start: 2022
  4. METHYLPREDNISOLONE ACETATE [Concomitant]
     Active Substance: METHYLPREDNISOLONE ACETATE
     Indication: Limb injury

REACTIONS (3)
  - Renal cancer [Unknown]
  - Crystal urine present [Unknown]
  - Onychomycosis [Unknown]

NARRATIVE: CASE EVENT DATE: 20210301
